FAERS Safety Report 9960264 (Version 1)
Quarter: 2014Q1

REPORT INFORMATION
  Report Type: Spontaneous
  Country: US (occurrence: None)
  Receive Date: 20140228
  Receipt Date: 20140228
  Transmission Date: 20141002
  Serious: Yes (Hospitalization)
  Sender: FDA-Public Use
  Company Number: 2014P1001575

PATIENT
  Age: 66 Year
  Sex: Male

DRUGS (7)
  1. VALACYCLOVIR [Suspect]
     Indication: OPHTHALMIC HERPES ZOSTER
  2. SIMVASTATIN [Concomitant]
  3. METOPROLOL [Concomitant]
  4. SEVELAMER [Concomitant]
  5. FUROSEMIDE [Concomitant]
  6. GLIMEPERIDE [Concomitant]
  7. TRIFLURIDINE [Concomitant]

REACTIONS (7)
  - Hallucination, visual [None]
  - Insomnia [None]
  - Photosensitivity reaction [None]
  - Disturbance in attention [None]
  - Blood glucose increased [None]
  - Arrhythmia [None]
  - Overdose [None]
